FAERS Safety Report 5219019-6 (Version None)
Quarter: 2007Q1

REPORT INFORMATION
  Report Type: 
  Country: None (occurrence: None)
  Receive Date: 20070125
  Receipt Date: 20070117
  Transmission Date: 20070707
  Serious: Yes (Hospitalization)
  Sender: FDA-Public Use
  Company Number: JP-ELI_LILLY_AND_COMPANY-JP200612003992

PATIENT
  Age: 65 Year
  Sex: Male

DRUGS (2)
  1. GEMZAR [Suspect]
     Indication: PANCREATIC CARCINOMA NON-RESECTABLE
     Dosage: UNK, OTHER
     Route: 042
  2. FLUOROURACIL [Concomitant]
     Indication: PANCREATIC CARCINOMA NON-RESECTABLE
     Dosage: UNK, OTHER
     Route: 013

REACTIONS (9)
  - ACUTE RESPIRATORY DISTRESS SYNDROME [None]
  - ANAEMIA [None]
  - DISSEMINATED INTRAVASCULAR COAGULATION [None]
  - HYPOPROTEINAEMIA [None]
  - LIVER ABSCESS [None]
  - SEPSIS [None]
  - SHOCK [None]
  - VASCULAR PSEUDOANEURYSM [None]
  - WHITE BLOOD CELL COUNT DECREASED [None]
